FAERS Safety Report 5858084-X (Version None)
Quarter: 2008Q3

REPORT INFORMATION
  Report Type: 
  Country: None (occurrence: None)
  Receive Date: 20080818
  Receipt Date: 20080603
  Transmission Date: 20090109
  Serious: No
  Sender: FDA-Public Use
  Company Number: WAES 0806USA00637

PATIENT
  Age: 42 Year
  Sex: Male

DRUGS (5)
  1. JANUVIA [Suspect]
     Indication: DIABETES MELLITUS
     Dosage: 100 MG/DAILY/PO
     Route: 048
     Dates: start: 20050601
  2. GLUCOTROL [Concomitant]
  3. KLONOPIN [Concomitant]
  4. LEVEMIR [Concomitant]
  5. PHENOBARBITAL TAB [Concomitant]

REACTIONS (1)
  - WEIGHT INCREASED [None]
